FAERS Safety Report 23278905 (Version 1)
Quarter: 2023Q4

REPORT INFORMATION
  Report Type: Spontaneous
  Country: US (occurrence: US)
  Receive Date: 20231208
  Receipt Date: 20231208
  Transmission Date: 20240110
  Serious: No
  Sender: FDA-Public Use
  Company Number: US-NOVOPROD-1027393

PATIENT
  Sex: Male

DRUGS (1)
  1. NOVOLIN 70/30 [Suspect]
     Active Substance: INSULIN HUMAN
     Indication: Product used for unknown indication
     Dosage: 4 UNITS
     Route: 058
     Dates: start: 202212

REACTIONS (3)
  - Depressed mood [Unknown]
  - Anxiety [Unknown]
  - Confusional state [Unknown]
